FAERS Safety Report 24229710 (Version 1)
Quarter: 2024Q3

REPORT INFORMATION
  Report Type: Spontaneous
  Country: US (occurrence: US)
  Receive Date: 20240820
  Receipt Date: 20240820
  Transmission Date: 20241017
  Serious: Yes (Other)
  Sender: NOVARTIS
  Company Number: US-002147023-NVSC2024US166383

PATIENT
  Age: 57 Year
  Sex: Female
  Weight: 65.76 kg

DRUGS (1)
  1. TAFINLAR [Suspect]
     Active Substance: DABRAFENIB MESYLATE
     Indication: Carcinoid tumour
     Dosage: 150 MG, QD
     Route: 048

REACTIONS (4)
  - Loss of consciousness [Unknown]
  - Tremor [Unknown]
  - Glossodynia [Unknown]
  - Chills [Unknown]

NARRATIVE: CASE EVENT DATE: 20240708
